FAERS Safety Report 18249858 (Version 1)
Quarter: 2020Q3

REPORT INFORMATION
  Report Type: Spontaneous
  Country: BE (occurrence: BE)
  Receive Date: 20200909
  Receipt Date: 20200909
  Transmission Date: 20201103
  Serious: Yes (Hospitalization, Other)
  Sender: FDA-Public Use
  Company Number: BE-TAKEDA-2020TUS037849

PATIENT
  Age: 54 Year
  Sex: Female
  Weight: 65 kg

DRUGS (1)
  1. ENTYVIO [Suspect]
     Active Substance: VEDOLIZUMAB
     Indication: CROHN^S DISEASE
     Dosage: 300 MILLIGRAM
     Route: 042
     Dates: start: 20190328

REACTIONS (2)
  - Small intestinal obstruction [Unknown]
  - Therapeutic reaction time decreased [Unknown]

NARRATIVE: CASE EVENT DATE: 2020
